FAERS Safety Report 18073665 (Version 1)
Quarter: 2020Q3

REPORT INFORMATION
  Report Type: Spontaneous
  Country: KW (occurrence: KW)
  Receive Date: 20200727
  Receipt Date: 20200727
  Transmission Date: 20201103
  Serious: Yes (Other)
  Sender: FDA-Public Use
  Company Number: KW-HQ SPECIALTY-KW-2020INT000084

PATIENT
  Age: 10 Year
  Sex: Male

DRUGS (4)
  1. VALPROATE [Concomitant]
     Active Substance: VALPROIC ACID
     Indication: AUTISM SPECTRUM DISORDER
     Dosage: 1000 MG, QD
     Route: 065
  2. LEVETIRACETAM. [Suspect]
     Active Substance: LEVETIRACETAM
     Indication: EPILEPSY
     Dosage: 500 MG, QD
     Route: 065
  3. RISPERIDONE. [Concomitant]
     Active Substance: RISPERIDONE
     Indication: AUTISM SPECTRUM DISORDER
     Dosage: 1 ML, QD
     Route: 065
  4. RISPERIDONE. [Concomitant]
     Active Substance: RISPERIDONE
     Dosage: 1.5 ML, QD (IN 2 DIVIDED DOSES)
     Route: 065

REACTIONS (1)
  - Intentional self-injury [Recovered/Resolved]
